FAERS Safety Report 13352388 (Version 2)
Quarter: 2017Q1

REPORT INFORMATION
  Report Type: Spontaneous
  Country: IT (occurrence: IT)
  Receive Date: 20170320
  Receipt Date: 20170329
  Transmission Date: 20170429
  Serious: Yes (Other)
  Sender: FDA-Public Use
  Company Number: IT-PFIZER INC-2017117359

PATIENT
  Age: 36 Year
  Sex: Female
  Weight: 76 kg

DRUGS (2)
  1. OXALIPLATIN. [Suspect]
     Active Substance: OXALIPLATIN
     Indication: COLON CANCER
     Dosage: 175 MG, CYCLIC
     Route: 042
     Dates: start: 20161013, end: 20170216
  2. XELODA [Concomitant]
     Active Substance: CAPECITABINE
     Dosage: 2500 MG, UNK
     Route: 048

REACTIONS (1)
  - Joint stiffness [Recovering/Resolving]

NARRATIVE: CASE EVENT DATE: 20170217
